FAERS Safety Report 16138118 (Version 1)
Quarter: 2019Q1

REPORT INFORMATION
  Report Type: Spontaneous
  Country: DK (occurrence: DK)
  Receive Date: 20190330
  Receipt Date: 20190330
  Transmission Date: 20190418
  Serious: Yes (Hospitalization)
  Sender: FDA-Public Use
  Company Number: DK-ACCORD-116611

PATIENT
  Age: 94 Year
  Sex: Female

DRUGS (5)
  1. CALCIUM/ERGOCALCIFEROL [Concomitant]
     Indication: PRODUCT USED FOR UNKNOWN INDICATION
     Dosage: STRENGTH: UNKNOWN
     Route: 048
     Dates: start: 20140220, end: 20181227
  2. OMEPRAZOLE. [Concomitant]
     Active Substance: OMEPRAZOLE
     Indication: GASTROOESOPHAGEAL REFLUX DISEASE
     Dosage: STRENGTH: 20 MG. DOSE: 1 TABLET, AT MOST 2 TIMES DAILY.
     Route: 048
     Dates: start: 20161222, end: 20181227
  3. LEVOTHYROXINE. [Concomitant]
     Active Substance: LEVOTHYROXINE
     Indication: HYPOMETABOLISM
     Dosage: STRENGTH: 50 MICROGRAMS
     Route: 048
     Dates: start: 20131016
  4. SPIRONOLACTONE. [Suspect]
     Active Substance: SPIRONOLACTONE
     Indication: DIURETIC THERAPY
     Dosage: STRENGTH: 25 MG
     Route: 048
     Dates: start: 20170118, end: 20181228
  5. GLYCERYL TRINITRATE [Concomitant]
     Active Substance: NITROGLYCERIN
     Indication: CHEST PAIN
     Dosage: STRENGTH: 0.4 MICROGRAMS / DOSE.
     Route: 048
     Dates: start: 20181201

REACTIONS (4)
  - Upper limb fracture [Unknown]
  - Hyponatraemia [Not Recovered/Not Resolved]
  - Fall [Unknown]
  - Hyperkalaemia [Not Recovered/Not Resolved]

NARRATIVE: CASE EVENT DATE: 2018
